FAERS Safety Report 7007359-X (Version None)
Quarter: 2010Q3

REPORT INFORMATION
  Report Type: 
  Country: None (occurrence: None)
  Receive Date: 20100920
  Receipt Date: 20100913
  Transmission Date: 20110219
  Serious: Yes (Hospitalization, Other)
  Sender: FDA-Public Use
  Company Number: 2010SP009225

PATIENT
  Age: 36 Year
  Sex: Female

DRUGS (3)
  1. NUVARING [Suspect]
     Indication: CONTRACEPTION
     Dates: start: 20040901, end: 20080201
  2. TRIAMTERENE [Concomitant]
  3. LISINOPRIL [Concomitant]

REACTIONS (12)
  - ACUTE MYOCARDIAL INFARCTION [None]
  - APNOEIC ATTACK [None]
  - CORONARY ARTERY OCCLUSION [None]
  - CORONARY ARTERY THROMBOSIS [None]
  - DYSLIPIDAEMIA [None]
  - FATIGUE [None]
  - LIPOPROTEIN (A) INCREASED [None]
  - MYOCARDIAL INFARCTION [None]
  - OVARIAN CYST [None]
  - OVARIAN FIBROMA [None]
  - SNORING [None]
  - UTERINE LEIOMYOMA [None]
